FAERS Safety Report 11298840 (Version 1)
Quarter: 2015Q3

REPORT INFORMATION
  Report Type: Spontaneous
  Country: US (occurrence: US)
  Receive Date: 20150722
  Receipt Date: 20150722
  Transmission Date: 20151125
  Serious: No
  Sender: FDA-Public Use
  Company Number: US-ELI_LILLY_AND_COMPANY-US201205002672

PATIENT
  Age: 71 Year
  Sex: Female

DRUGS (1)
  1. EFFIENT [Suspect]
     Active Substance: PRASUGREL HYDROCHLORIDE
     Indication: ANGIOPLASTY
     Dosage: 10 MG, UNK
     Dates: start: 201202

REACTIONS (3)
  - Gastrooesophageal reflux disease [Unknown]
  - Cough [Unknown]
  - Contusion [Unknown]
